FAERS Safety Report 6456757-1 (Version None)
Quarter: 2009Q4

REPORT INFORMATION
  Report Type: 
  Country: None (occurrence: None)
  Receive Date: 20091103
  Receipt Date: 20091102
  Transmission Date: 20100525
  Serious: Yes (Other)
  Sender: FDA-Public Use
  Company Number: 2009AL006984

PATIENT
  Age: 17 Year
  Sex: Male

DRUGS (2)
  1. VENLAFXINE HYDROCHLORIDE [Suspect]
     Indication: ANXIETY
     Dosage: 37.5 MG;UNK;UNK
  2. VENLAFXINE HYDROCHLORIDE [Suspect]
     Indication: CONDITION AGGRAVATED
     Dosage: 37.5 MG;UNK;UNK

REACTIONS (5)
  - BLOOD PRESSURE INCREASED [None]
  - HEADACHE [None]
  - HEART RATE INCREASED [None]
  - NAUSEA [None]
  - VOMITING [None]
